FAERS Safety Report 12521498 (Version 4)
Quarter: 2016Q4

REPORT INFORMATION
  Report Type: Spontaneous
  Country: US (occurrence: US)
  Receive Date: 20160701
  Receipt Date: 20161026
  Transmission Date: 20170207
  Serious: No
  Sender: FDA-Public Use
  Company Number: US-ACTELION-A-US2016-135426

PATIENT
  Age: 68 Year
  Sex: Female

DRUGS (1)
  1. VELETRI [Suspect]
     Active Substance: EPOPROSTENOL
     Indication: PULMONARY HYPERTENSION
     Dosage: 40 NG/KG, PER MIN
     Route: 042
     Dates: start: 20150828

REACTIONS (6)
  - Drug administration error [Recovered/Resolved]
  - Dyspnoea [Recovered/Resolved]
  - Epistaxis [Unknown]
  - Drug dose omission [Recovered/Resolved]
  - Hypotension [Unknown]
  - Syncope [Unknown]
